FAERS Safety Report 20220647 (Version 2)
Quarter: 2022Q1

REPORT INFORMATION
  Report Type: Report from Study
  Country: US (occurrence: US)
  Receive Date: 20211223
  Receipt Date: 20220124
  Transmission Date: 20220424
  Serious: Yes (Death, Hospitalization, Other)
  Sender: FDA-Public Use
  Company Number: US-UCBSA-2021059056

PATIENT
  Sex: Male
  Weight: 77 kg

DRUGS (1)
  1. LACOSAMIDE [Suspect]
     Active Substance: LACOSAMIDE
     Indication: Seizure
     Dosage: 150 MILLIGRAM, 2X/DAY (BID)
     Dates: end: 20210806

REACTIONS (5)
  - Cerebrovascular accident [Fatal]
  - Acute respiratory failure [Fatal]
  - Pneumonia aspiration [Fatal]
  - Seizure [Fatal]
  - Hypotension [Unknown]

NARRATIVE: CASE EVENT DATE: 20210101
